FAERS Safety Report 7715821-7 (Version None)
Quarter: 2011Q3

REPORT INFORMATION
  Report Type: 
  Country: None (occurrence: None)
  Receive Date: 20110812
  Receipt Date: 20110426
  Transmission Date: 20111222
  Serious: Yes (Hospitalization)
  Sender: FDA-Public Use
  Company Number: MEDI-0013134

PATIENT
  Age: 3 Month
  Sex: Male
  Weight: 8 kg

DRUGS (1)
  1. SYNAGIS [Suspect]
     Indication: ANTIVIRAL PROPHYLAXIS
     Dosage: 15 MG/KG, 1 IN 1  M
     Dates: start: 20101218, end: 20110301

REACTIONS (1)
  - RESPIRATORY SYNCYTIAL VIRUS INFECTION [None]
